FAERS Safety Report 14179772 (Version 3)
Quarter: 2018Q1

REPORT INFORMATION
  Report Type: Report from Study
  Country: AR (occurrence: AR)
  Receive Date: 20171110
  Receipt Date: 20180116
  Transmission Date: 20180508
  Serious: Yes (Death, Hospitalization, Other)
  Sender: FDA-Public Use
  Company Number: AR-BAYER-2017-210729

PATIENT
  Age: 72 Year
  Sex: Male

DRUGS (1)
  1. XOFIGO [Suspect]
     Active Substance: RADIUM RA-223 DICHLORIDE
     Indication: PROSTATE CANCER
     Dosage: 55 KBQ, UNK
     Route: 042
     Dates: start: 201708

REACTIONS (8)
  - Prostate cancer [None]
  - Death [Fatal]
  - Anaemia [Recovering/Resolving]
  - Platelet count decreased [Recovering/Resolving]
  - Renal impairment [Not Recovered/Not Resolved]
  - General physical health deterioration [Not Recovered/Not Resolved]
  - Haemorrhage [Recovering/Resolving]
  - Coagulopathy [Recovering/Resolving]

NARRATIVE: CASE EVENT DATE: 201709
